FAERS Safety Report 6286142-7 (Version None)
Quarter: 2009Q3

REPORT INFORMATION
  Report Type: 
  Country: None (occurrence: None)
  Receive Date: 20090728
  Receipt Date: 20090717
  Transmission Date: 20100115
  Serious: Yes (Other)
  Sender: FDA-Public Use
  Company Number: GB-JNJFOC-20090706188

PATIENT
  Sex: Female
  Weight: 45 kg

DRUGS (4)
  1. REMICADE [Suspect]
     Indication: JUVENILE ARTHRITIS
     Route: 042
  2. ACETAMINOPHEN W/ CODEINE [Concomitant]
  3. NORDETTE-28 [Concomitant]
  4. AZATHIOPRINE [Concomitant]

REACTIONS (1)
  - CERVIX CARCINOMA [None]
